FAERS Safety Report 8133877-7 (Version None)
Quarter: 2012Q1

REPORT INFORMATION
  Report Type: 
  Country: None (occurrence: None)
  Receive Date: 20120213
  Receipt Date: 20120202
  Transmission Date: 20120608
  Serious: Yes (Hospitalization, Other)
  Sender: FDA-Public Use
  Company Number: DE-ELI_LILLY_AND_COMPANY-DE201202000537

PATIENT
  Age: 63 Year
  Sex: Female

DRUGS (6)
  1. VASOMOTAL [Concomitant]
  2. DEKRISTOL [Concomitant]
  3. SIMVASTATIN [Concomitant]
  4. FORTEO [Suspect]
     Indication: OSTEOPOROSIS
     Dosage: UNK, QD
     Route: 058
     Dates: start: 20040101, end: 20050101
  5. FORTEO [Suspect]
     Dosage: UNK, QD
     Route: 058
     Dates: start: 20111106
  6. CALCIUM [Concomitant]

REACTIONS (1)
  - PATHOLOGICAL FRACTURE [None]
